FAERS Safety Report 9430172 (Version 1)
Quarter: 2013Q3

REPORT INFORMATION
  Report Type: Spontaneous
  Country: US (occurrence: US)
  Receive Date: 20130730
  Receipt Date: 20130730
  Transmission Date: 20140515
  Serious: No
  Sender: FDA-Public Use
  Company Number: US-PFIZER INC-2013217475

PATIENT
  Age: 22 Year
  Sex: Female
  Weight: 61.22 kg

DRUGS (2)
  1. ADVIL MIGRAINE [Suspect]
     Indication: MIGRAINE
     Dosage: 400 MG (BY TAKING TWO CAPSULES OF 200MG), ONCE A DAY
     Route: 048
     Dates: end: 20130724
  2. ADVIL MIGRAINE [Suspect]
     Dosage: 800MG IN 24 HOURS
     Route: 048
     Dates: start: 20130724

REACTIONS (2)
  - Intentional overdose [Unknown]
  - Drug ineffective [Unknown]
